FAERS Safety Report 6750165-1 (Version None)
Quarter: 2010Q2

REPORT INFORMATION
  Report Type: 
  Country: None (occurrence: None)
  Receive Date: 20100601
  Receipt Date: 20100524
  Transmission Date: 20101027
  Serious: Yes (Death, Hospitalization)
  Sender: FDA-Public Use
  Company Number: US-GILEAD-2010-0029062

PATIENT
  Sex: Female
  Weight: 31.78 kg

DRUGS (15)
  1. LETAIRIS [Suspect]
     Indication: PULMONARY ARTERIAL HYPERTENSION
     Route: 048
     Dates: start: 20080822
  2. FORTEO [Concomitant]
  3. ALBUTEROL [Concomitant]
  4. NORVASC [Concomitant]
  5. ESTROPIPATE [Concomitant]
  6. PRILOSEC [Concomitant]
  7. PERCOCET [Concomitant]
  8. KAPIDEX [Concomitant]
  9. DARVOCET [Concomitant]
  10. RECLAST [Concomitant]
  11. CALCIUM CARBONATE [Concomitant]
  12. MULTI-VITAMIN [Concomitant]
  13. ASPIRIN [Concomitant]
  14. ACIPHEX [Concomitant]
  15. ST. JOHN'S WORT [Concomitant]

REACTIONS (3)
  - DEATH [None]
  - PNEUMONIA [None]
  - RESPIRATORY FAILURE [None]
